FAERS Safety Report 6841892-6 (Version None)
Quarter: 2010Q3

REPORT INFORMATION
  Report Type: 
  Country: None (occurrence: None)
  Receive Date: 20100714
  Receipt Date: 20070731
  Transmission Date: 20110219
  Serious: No
  Sender: FDA-Public Use
  Company Number: US-PFIZER INC-2007059855

PATIENT
  Sex: Female

DRUGS (2)
  1. CHANTIX [Suspect]
     Dates: start: 20070712
  2. IBUPROFEN [Suspect]
     Indication: HEADACHE
     Dates: start: 20070719

REACTIONS (4)
  - HEADACHE [None]
  - MIGRAINE [None]
  - NAUSEA [None]
  - VISION BLURRED [None]
